FAERS Safety Report 13589916 (Version 1)
Quarter: 2017Q2

REPORT INFORMATION
  Report Type: Spontaneous
  Country: BE (occurrence: BE)
  Receive Date: 20170529
  Receipt Date: 20170529
  Transmission Date: 20170830
  Serious: Yes (Hospitalization, Other)
  Sender: FDA-Public Use
  Company Number: BE-AUROBINDO-AUR-APL-2017-34499

PATIENT
  Age: 20 Year
  Sex: Male

DRUGS (4)
  1. RIFAMPICIN [Suspect]
     Active Substance: RIFAMPIN
     Indication: STAPHYLOCOCCAL SKIN INFECTION
     Route: 048
  2. MOXIFLOXACIN ABZ 400 MG FILMTABLETTEN [Suspect]
     Active Substance: MOXIFLOXACIN
     Indication: STAPHYLOCOCCAL SKIN INFECTION
     Route: 048
  3. TOBRAMYCIN. [Concomitant]
     Active Substance: TOBRAMYCIN
     Indication: ANTIBIOTIC PROPHYLAXIS
  4. CEFTAZIDIME. [Concomitant]
     Active Substance: CEFTAZIDIME
     Indication: ANTIBIOTIC PROPHYLAXIS

REACTIONS (16)
  - Serositis [Recovered/Resolved]
  - Coagulopathy [Recovered/Resolved]
  - Toxicity to various agents [None]
  - Pericarditis [None]
  - Hepatocellular injury [Recovered/Resolved]
  - Hypergammaglobulinaemia [Recovered/Resolved]
  - Hyperlactacidaemia [None]
  - Drug reaction with eosinophilia and systemic symptoms [Recovered/Resolved]
  - Renal impairment [Recovered/Resolved]
  - Pleural effusion [None]
  - Hypergammaglobulinaemia [None]
  - Hypoxia [None]
  - Pyrexia [Recovered/Resolved]
  - Malaise [Recovered/Resolved]
  - Eosinophilia [Recovered/Resolved]
  - Rash [Recovered/Resolved]
